FAERS Safety Report 8477163-4 (Version None)
Quarter: 2012Q2

REPORT INFORMATION
  Report Type: 
  Country: None (occurrence: None)
  Receive Date: 20120625
  Receipt Date: 20120625
  Transmission Date: 20120825
  Serious: Yes (Hospitalization)
  Sender: FDA-Public Use
  Company Number: None

PATIENT
  Age: 40 Year
  Sex: Male

DRUGS (1)
  1. COPAXONE [Suspect]
     Indication: MULTIPLE SCLEROSIS
     Dosage: 20MG DAILY SUBCUTANEOUSLY
     Route: 058
     Dates: start: 20111101

REACTIONS (5)
  - SYNCOPE [None]
  - GASTROENTERITIS VIRAL [None]
  - FALL [None]
  - LOSS OF CONSCIOUSNESS [None]
  - DEHYDRATION [None]
